FAERS Safety Report 11809738 (Version 4)
Quarter: 2016Q1

REPORT INFORMATION
  Report Type: Spontaneous
  Country: JP (occurrence: JP)
  Receive Date: 20151208
  Receipt Date: 20160223
  Transmission Date: 20160525
  Serious: Yes (Hospitalization)
  Sender: FDA-Public Use
  Company Number: JP-009507513-1512JPN004021

PATIENT
  Age: 70 Year
  Sex: Male

DRUGS (20)
  1. GARENOXACIN MESYLATE [Concomitant]
     Active Substance: GARENOXACIN MESYLATE
     Dosage: UNK
  2. EMEND [Suspect]
     Active Substance: APREPITANT
     Dosage: 5TH COURSE, 80MG, 125MG
     Route: 048
  3. FLUOROURACIL. [Concomitant]
     Active Substance: FLUOROURACIL
     Indication: COLON CANCER
     Dosage: 400 MG/M2, QOW
     Route: 041
  4. FLUOROURACIL. [Concomitant]
     Active Substance: FLUOROURACIL
     Dosage: FIRST-LINE CHEMOTHERAPY A 22 HOUR INFUSION OF 2400 MG/M2/DAY
     Route: 041
  5. FLUOROURACIL. [Concomitant]
     Active Substance: FLUOROURACIL
     Dosage: SECOND-LINE CHEMOTHERAPY,BOLUS 400 MG/M2/DAY
     Route: 041
  6. PIPERACILLIN AND TAZOBACTAM [Concomitant]
     Active Substance: PIPERACILLIN SODIUM\TAZOBACTAM SODIUM
     Dosage: UNK
  7. LEUCOVORIN. [Concomitant]
     Active Substance: LEUCOVORIN
     Indication: COLON CANCER
     Dosage: FIRST-LINE CHEMOTHERAPY, 200 MG/M2, ONCE EVERY 2 WEEKS
     Route: 065
  8. EMEND [Suspect]
     Active Substance: APREPITANT
     Dosage: 2ND COURSE, 80MG, 125MG
     Route: 048
  9. EMEND [Suspect]
     Active Substance: APREPITANT
     Dosage: 3RD COURSE, 80MG, 125MG
     Route: 048
  10. SULFAMETHOXAZOLE (+) TRIMETHOPRIM [Suspect]
     Active Substance: SULFAMETHOXAZOLE\TRIMETHOPRIM
     Dosage: UNK
     Route: 042
  11. DEXAMETHASONE. [Suspect]
     Active Substance: DEXAMETHASONE
     Indication: PROPHYLAXIS OF NAUSEA AND VOMITING
     Dosage: 9.9 MG DAILY, ADMINISTERED IMMEDIATELY BEFORE ADMINISTRATION OF THE ANTICANCER DRUGS
     Route: 042
  12. FLUOROURACIL. [Concomitant]
     Active Substance: FLUOROURACIL
     Dosage: SECOND-LINE CHEMOTHERAPY, A 22 HOUR INFUSION OF 2400 MG/M2,
     Route: 041
  13. PANITUMUMAB [Concomitant]
     Active Substance: PANITUMUMAB
     Indication: COLON CANCER
     Dosage: 6 MG/KG, ONCE EVERY TWO WEEKS
     Route: 041
  14. EMEND [Suspect]
     Active Substance: APREPITANT
     Indication: PROPHYLAXIS OF NAUSEA AND VOMITING
     Dosage: 1ST COURSE, 80MG, 125MG
     Route: 048
  15. DEXAMETHASONE. [Suspect]
     Active Substance: DEXAMETHASONE
     Indication: PROPHYLAXIS OF NAUSEA AND VOMITING
     Dosage: 8 MG/DAY, DAY 2 TO DAY 4 FOLLOWING ADMINISTRATION OF THE ANTICANCER DRUGS
     Route: 048
  16. LEUCOVORIN. [Concomitant]
     Active Substance: LEUCOVORIN
     Dosage: SECOND-LINE CHEMOTHERAPY, 200 MG/M2, QOD
     Route: 065
  17. EMEND [Suspect]
     Active Substance: APREPITANT
     Dosage: 4TH COURSE, 80MG, 125MG
     Route: 048
  18. OXALIPLATIN. [Concomitant]
     Active Substance: OXALIPLATIN
     Indication: COLON CANCER
     Dosage: 85 MG/KG, ONCE EVERY TWO WEEKS
     Route: 041
  19. BEVACIZUMAB [Concomitant]
     Active Substance: BEVACIZUMAB
     Indication: COLON CANCER
     Dosage: FIRST-LINE CHEMOTHERAPY, 5 MG/KG, ONCE EVERY 2 WEEKS
     Route: 041
  20. IRINOTECAN HYDROCHLORIDE. [Concomitant]
     Active Substance: IRINOTECAN HYDROCHLORIDE
     Dosage: 150 MG/M2, ONCE EVERY 2 WEEKS
     Route: 041

REACTIONS (2)
  - Pneumocystis jirovecii pneumonia [Recovered/Resolved]
  - Drug eruption [Unknown]
